FAERS Safety Report 9261784 (Version 1)
Quarter: 2013Q2

REPORT INFORMATION
  Report Type: Spontaneous
  Country: TR (occurrence: TR)
  Receive Date: 20130429
  Receipt Date: 20130429
  Transmission Date: 20140414
  Serious: Yes (Hospitalization)
  Sender: FDA-Public Use
  Company Number: TR-ABBOTT-13P-161-1062691-00

PATIENT
  Age: 79 Year
  Sex: 0
  Weight: 75 kg

DRUGS (4)
  1. HUMIRA [Suspect]
     Indication: ANKYLOSING SPONDYLITIS
     Route: 058
     Dates: start: 20110826, end: 20130306
  2. INFLIXIMAB [Suspect]
     Indication: PRODUCT USED FOR UNKNOWN INDICATION
     Dosage: 5-10 MG EVERY 6-8 WEEKS
     Dates: start: 200812, end: 201103
  3. RAMIPRIL [Concomitant]
     Indication: HYPERTENSION
     Route: 048
     Dates: start: 19980313
  4. ANDANTE [Concomitant]
     Indication: OSTEOPOROSIS
     Route: 048
     Dates: start: 19950313

REACTIONS (2)
  - Adenocarcinoma pancreas [Unknown]
  - Fatigue [Unknown]
